FAERS Safety Report 8137974-1 (Version None)
Quarter: 2012Q1

REPORT INFORMATION
  Report Type: 
  Country: None (occurrence: None)
  Receive Date: 20120215
  Receipt Date: 20120213
  Transmission Date: 20120608
  Serious: Yes (Other)
  Sender: FDA-Public Use
  Company Number: HK-PFIZER INC-2012038920

PATIENT
  Sex: Female

DRUGS (4)
  1. NORVASC [Suspect]
     Dosage: 5 MG, UNK
  2. VOLTAFLEX [Suspect]
     Indication: SCIATICA
     Dosage: 625 MG, UNK
  3. LIPITOR [Suspect]
     Dosage: 5 MG, (CUTTING 10MG INTO HALVES)
  4. PERINDOPRIL ERBUMINE [Suspect]
     Indication: HYPERTENSION
     Dosage: UNK

REACTIONS (4)
  - HEART RATE DECREASED [None]
  - BACK PAIN [None]
  - CHEST PAIN [None]
  - PAIN IN EXTREMITY [None]
